FAERS Safety Report 6155607-0 (Version None)
Quarter: 2009Q2

REPORT INFORMATION
  Report Type: 
  Country: None (occurrence: None)
  Receive Date: 20090415
  Receipt Date: 20090114
  Transmission Date: 20091009
  Serious: Yes (Other)
  Sender: FDA-Public Use
  Company Number: CA-PFIZER INC-2009156070

PATIENT

DRUGS (1)
  1. FLAGYL [Suspect]

REACTIONS (1)
  - JARISCH-HERXHEIMER REACTION [None]
